FAERS Safety Report 17274908 (Version 3)
Quarter: 2020Q1

REPORT INFORMATION
  Report Type: Spontaneous
  Country: US (occurrence: US)
  Receive Date: 20200116
  Receipt Date: 20200226
  Transmission Date: 20200409
  Serious: No
  Sender: FDA-Public Use
  Company Number: US-009507513-2001USA004847

PATIENT
  Age: 17 Year
  Sex: Female
  Weight: 51.7 kg

DRUGS (1)
  1. NEXPLANON [Suspect]
     Active Substance: ETONOGESTREL
     Indication: CONTRACEPTION
     Dosage: 1 ROD UP TO 3 YEARS ON THE NON-DOMINANT, RIGHT UPPER ARM
     Route: 059
     Dates: start: 20200108, end: 20200113

REACTIONS (11)
  - Photophobia [Not Recovered/Not Resolved]
  - Implant site swelling [Recovering/Resolving]
  - Chills [Not Recovered/Not Resolved]
  - Complication associated with device [Recovered/Resolved]
  - Implant site bruising [Recovering/Resolving]
  - Pyrexia [Recovered/Resolved]
  - Headache [Not Recovered/Not Resolved]
  - Tremor [Not Recovered/Not Resolved]
  - Nausea [Unknown]
  - Viral infection [Unknown]
  - Vomiting [Not Recovered/Not Resolved]

NARRATIVE: CASE EVENT DATE: 202001
